FAERS Safety Report 8212294-5 (Version None)
Quarter: 2012Q1

REPORT INFORMATION
  Report Type: 
  Country: None (occurrence: None)
  Receive Date: 20120315
  Receipt Date: 20120229
  Transmission Date: 20120608
  Serious: Yes (Congenital Anomaly, Other)
  Sender: FDA-Public Use
  Company Number: FR-ROCHE-1046644

PATIENT
  Sex: Male
  Weight: 6.93 kg

DRUGS (1)
  1. VESANOID [Suspect]
     Indication: PRODUCT USED FOR UNKNOWN INDICATION
     Dosage: 9 TABLETS ONCE WEEKLY
     Route: 050

REACTIONS (2)
  - EXPOSURE VIA FATHER [None]
  - CONGENITAL MEGAURETER [None]
